FAERS Safety Report 7638537-4 (Version None)
Quarter: 2011Q3

REPORT INFORMATION
  Report Type: 
  Country: None (occurrence: None)
  Receive Date: 20110727
  Receipt Date: 20110722
  Transmission Date: 20111222
  Serious: Yes (Death)
  Sender: FDA-Public Use
  Company Number: PHHY2011US66635

PATIENT
  Age: 55 Year
  Sex: Male

DRUGS (1)
  1. FANAPT [Suspect]
     Dosage: 2 MG, BID
     Route: 048
     Dates: start: 20110714

REACTIONS (1)
  - MYOCARDIAL INFARCTION [None]
